FAERS Safety Report 14350295 (Version 1)
Quarter: 2018Q1

REPORT INFORMATION
  Report Type: Spontaneous
  Country: US (occurrence: US)
  Receive Date: 20180103
  Receipt Date: 20180103
  Transmission Date: 20180509
  Serious: Yes (Other)
  Sender: FDA-Public Use
  Company Number: None

PATIENT
  Age: 51 Year
  Sex: Female
  Weight: 82.35 kg

DRUGS (1)
  1. HUMIRA [Suspect]
     Active Substance: ADALIMUMAB
     Indication: RHEUMATOID ARTHRITIS
     Dosage: ?          QUANTITY:1 INJECTION(S);OTHER FREQUENCY:EVERY TWO WEEKS;?
     Route: 058

REACTIONS (3)
  - Viral sinusitis [None]
  - Tinea versicolour [None]
  - Bronchitis [None]

NARRATIVE: CASE EVENT DATE: 20150501
